FAERS Safety Report 10836652 (Version 1)
Quarter: 2015Q1

REPORT INFORMATION
  Report Type: Spontaneous
  Country: US (occurrence: None)
  Receive Date: 20150218
  Receipt Date: 20150218
  Transmission Date: 20150721
  Serious: Yes (Hospitalization)
  Sender: FDA-Public Use
  Company Number: INT_00693_2015

PATIENT
  Age: 29 Year
  Sex: Female

DRUGS (3)
  1. ETOPOSIDE. [Suspect]
     Active Substance: ETOPOSIDE
     Indication: EXTRAGONADAL PRIMARY MALIGNANT TERATOMA
     Dosage: 1 DF
  2. BLEOMYCIN [Suspect]
     Active Substance: BLEOMYCIN SULFATE
     Indication: EXTRAGONADAL PRIMARY MALIGNANT TERATOMA
     Dosage: 1DF
  3. CISPLATIN. [Suspect]
     Active Substance: CISPLATIN
     Indication: EXTRAGONADAL PRIMARY MALIGNANT TERATOMA
     Dosage: FOR 4 DAYS

REACTIONS (13)
  - Toxicity to various agents [None]
  - Dehydration [None]
  - Seizure like phenomena [None]
  - Deafness [None]
  - Bradycardia [None]
  - Vomiting [None]
  - Ototoxicity [None]
  - Bone marrow failure [None]
  - Renal impairment [None]
  - Hypokalaemia [None]
  - Headache [None]
  - Nausea [None]
  - Liver disorder [None]
